FAERS Safety Report 4479352-2 (Version None)
Quarter: 2004Q4

REPORT INFORMATION
  Report Type: 
  Country: None (occurrence: None)
  Receive Date: 20041020
  Receipt Date: 20041012
  Transmission Date: 20050328
  Serious: Yes (Death)
  Sender: FDA-Public Use
  Company Number: US-JNJFOC-20040904213

PATIENT
  Sex: Female

DRUGS (2)
  1. DURAGESIC [Suspect]
     Route: 062
     Dates: start: 20040310, end: 20040701
  2. DURAGESIC [Suspect]
     Route: 062
     Dates: start: 20040310, end: 20040701

REACTIONS (2)
  - NAUSEA [None]
  - SOMNOLENCE [None]
